FAERS Safety Report 13904649 (Version 2)
Quarter: 2018Q3

REPORT INFORMATION
  Report Type: Spontaneous
  Country: US (occurrence: US)
  Receive Date: 20170825
  Receipt Date: 20180702
  Transmission Date: 20181010
  Serious: No
  Sender: FDA-Public Use
  Company Number: US-PFIZER INC-2017365813

PATIENT
  Age: 71 Year
  Sex: Female

DRUGS (1)
  1. SUTENT [Suspect]
     Active Substance: SUNITINIB MALATE
     Indication: METASTATIC RENAL CELL CARCINOMA
     Dosage: 50 MG, CYCLIC (DAILY FOR 2 WEEKS ON/1 WEEK OFF)

REACTIONS (6)
  - Arthritis [Unknown]
  - Back pain [Unknown]
  - Dehydration [Unknown]
  - Stress [Unknown]
  - Fatigue [Unknown]
  - Migraine [Unknown]
